FAERS Safety Report 11480567 (Version 1)
Quarter: 2015Q3

REPORT INFORMATION
  Report Type: Spontaneous
  Country: NL (occurrence: NL)
  Receive Date: 20150909
  Receipt Date: 20150909
  Transmission Date: 20151125
  Serious: Yes (Death)
  Sender: FDA-Public Use
  Company Number: NL-BAYER-2015-029466

PATIENT
  Age: 55 Year
  Sex: Female

DRUGS (1)
  1. NEXAVAR [Suspect]
     Active Substance: SORAFENIB
     Dosage: UNK
     Dates: start: 201502, end: 2015

REACTIONS (12)
  - Nasopharyngitis [Recovering/Resolving]
  - Asthenia [Recovering/Resolving]
  - Dry mouth [None]
  - Oral pain [None]
  - Fluid retention [None]
  - Blood potassium increased [None]
  - Rash [None]
  - Lip dry [None]
  - Death [Fatal]
  - Gastrointestinal disorder [None]
  - Hypertension [None]
  - Mucous membrane disorder [None]

NARRATIVE: CASE EVENT DATE: 2015
